FAERS Safety Report 19167702 (Version 1)
Quarter: 2021Q2

REPORT INFORMATION
  Report Type: Spontaneous
  Country: US (occurrence: US)
  Receive Date: 20210420
  Receipt Date: 20210420
  Transmission Date: 20210717
  Serious: Yes (Hospitalization)
  Sender: FDA-Public Use
  Company Number: None

PATIENT
  Age: 65 Year
  Sex: Male
  Weight: 54 kg

DRUGS (1)
  1. PANTOPRAZOLE (PANTOPRAZOLE NA 40MG TAB, EC) [Suspect]
     Active Substance: PANTOPRAZOLE SODIUM
     Indication: GASTROOESOPHAGEAL REFLUX DISEASE
     Dosage: ?          OTHER FREQUENCY:AM;?
     Route: 048
     Dates: end: 20210312

REACTIONS (3)
  - Dizziness [None]
  - Hypomagnesaemia [None]
  - Vomiting [None]

NARRATIVE: CASE EVENT DATE: 20210308
